FAERS Safety Report 11657820 (Version 1)
Quarter: 2015Q4

REPORT INFORMATION
  Report Type: Report from Study
  Country: US (occurrence: US)
  Receive Date: 20151023
  Receipt Date: 20151023
  Transmission Date: 20160304
  Serious: No
  Sender: FDA-Public Use
  Company Number: US-ABBVIE-15P-163-1399036-00

PATIENT
  Age: 39 Year
  Sex: Female
  Weight: 69.01 kg

DRUGS (3)
  1. CALCIUM [Concomitant]
     Active Substance: CALCIUM
     Indication: PRODUCT USED FOR UNKNOWN INDICATION
  2. LUPRON DEPOT [Suspect]
     Active Substance: LEUPROLIDE ACETATE
     Indication: UTERINE LEIOMYOMA
     Route: 050
     Dates: start: 201411
  3. IRON [Concomitant]
     Active Substance: IRON
     Indication: PRODUCT USED FOR UNKNOWN INDICATION

REACTIONS (5)
  - Bone pain [Not Recovered/Not Resolved]
  - Headache [Not Recovered/Not Resolved]
  - Libido decreased [Not Recovered/Not Resolved]
  - Fatigue [Not Recovered/Not Resolved]
  - Mood swings [Not Recovered/Not Resolved]

NARRATIVE: CASE EVENT DATE: 201502
